FAERS Safety Report 4460825-3 (Version None)
Quarter: 2004Q3

REPORT INFORMATION
  Report Type: 
  Country: None (occurrence: None)
  Receive Date: 20040928
  Receipt Date: 20040810
  Transmission Date: 20050211
  Serious: No
  Sender: FDA-Public Use
  Company Number: US-GLAXOSMITHKLINE-A0521644A

PATIENT
  Age: 47 Year
  Sex: Female

DRUGS (14)
  1. ADVAIR DISKUS 100/50 [Suspect]
     Indication: ASTHMA
     Dosage: 1PUFF TWICE PER DAY
     Route: 055
     Dates: start: 20030101
  2. ALLEGRA [Concomitant]
  3. SINGULAIR [Concomitant]
  4. PREDNISONE [Concomitant]
  5. NEBULIZER [Concomitant]
  6. COUGH MEDICINE WITH CODEINE [Concomitant]
  7. ACTIFED [Concomitant]
  8. ACTOS [Concomitant]
  9. LIPITOR [Concomitant]
  10. ALBUTEROL [Concomitant]
  11. IBUPROFEN [Concomitant]
  12. VALIUM [Concomitant]
  13. NASACORT [Concomitant]
  14. PROZAC [Concomitant]

REACTIONS (4)
  - DYSPNOEA [None]
  - FATIGUE [None]
  - LARYNGITIS [None]
  - TREMOR [None]
